FAERS Safety Report 15647043 (Version 2)
Quarter: 2019Q2

REPORT INFORMATION
  Report Type: Spontaneous
  Country: US (occurrence: US)
  Receive Date: 20181122
  Receipt Date: 20190501
  Transmission Date: 20190711
  Serious: Yes (Hospitalization, Other)
  Sender: FDA-Public Use
  Company Number: US-SUN PHARMACEUTICAL INDUSTRIES LTD-2018R1-191635

PATIENT
  Age: 17 Year
  Sex: Female

DRUGS (1)
  1. ACETAMINOPHEN. [Suspect]
     Active Substance: ACETAMINOPHEN
     Indication: DYSMENORRHOEA
     Dosage: 500MG ACETAMINOPHEN TABLETS APPROXIMATELY 25
     Route: 065

REACTIONS (4)
  - Overdose [Unknown]
  - Drug-induced liver injury [Unknown]
  - Syncope [Unknown]
  - Haemolysis [Unknown]
